FAERS Safety Report 25671339 (Version 4)
Quarter: 2025Q4

REPORT INFORMATION
  Report Type: Report from Study
  Country: CA (occurrence: CA)
  Receive Date: 20250812
  Receipt Date: 20251030
  Transmission Date: 20260118
  Serious: Yes (Hospitalization, Other)
  Sender: GILEAD
  Company Number: CA-GILEAD-2025-0723580

PATIENT
  Sex: Female
  Weight: 71.9 kg

DRUGS (5)
  1. BICTEGRAVIR\EMTRICITABINE\TENOFOVIR ALAFENAMIDE [Suspect]
     Active Substance: BICTEGRAVIR\EMTRICITABINE\TENOFOVIR ALAFENAMIDE
     Indication: HIV infection
     Dosage: 1 DOSAGE FORM, QD
     Route: 048
     Dates: start: 20240507
  2. CABENUVA [Concomitant]
     Active Substance: CABOTEGRAVIR\RILPIVIRINE
     Dosage: UNK
     Dates: start: 20250825
  3. DORAVIRINE [Concomitant]
     Active Substance: DORAVIRINE
     Dosage: 100 ONCE DAILY
     Dates: start: 20240507
  4. ACYCLOVIR [Concomitant]
     Active Substance: ACYCLOVIR
     Dosage: 300 MG, Q8H
     Route: 042
     Dates: start: 20240531
  5. METHYLPREDNISOLONE [Concomitant]
     Active Substance: METHYLPREDNISOLONE

REACTIONS (6)
  - Pneumocystis jirovecii pneumonia [Unknown]
  - Disseminated mycobacterium avium complex infection [Unknown]
  - Nausea [Unknown]
  - Fatigue [Unknown]
  - Respiratory symptom [Unknown]
  - Treatment noncompliance [Unknown]
